FAERS Safety Report 20711013 (Version 3)
Quarter: 2022Q3

REPORT INFORMATION
  Report Type: Report from Study
  Country: CA (occurrence: CA)
  Receive Date: 20220414
  Receipt Date: 20220906
  Transmission Date: 20221027
  Serious: Yes (Other)
  Sender: FDA-Public Use
  Company Number: CA-OTSUKA-2022_001582

PATIENT
  Age: 77 Year
  Sex: Male

DRUGS (1)
  1. CEDAZURIDINE\DECITABINE [Suspect]
     Active Substance: CEDAZURIDINE\DECITABINE
     Indication: Myelodysplastic syndrome
     Dosage: UNK
     Route: 065
     Dates: start: 20211115

REACTIONS (7)
  - Blood product transfusion dependent [Unknown]
  - White blood cell count decreased [Recovered/Resolved]
  - White blood cell count decreased [Unknown]
  - Eastern Cooperative Oncology Group performance status worsened [Unknown]
  - General physical health deterioration [Unknown]
  - Therapy interrupted [Unknown]
  - Product use issue [Unknown]

NARRATIVE: CASE EVENT DATE: 20211209
